FAERS Safety Report 9408169 (Version 1)
Quarter: 2013Q3

REPORT INFORMATION
  Report Type: Spontaneous
  Country: US (occurrence: US)
  Receive Date: 20130718
  Receipt Date: 20130718
  Transmission Date: 20140515
  Serious: Yes (Other)
  Sender: FDA-Public Use
  Company Number: US-ELI_LILLY_AND_COMPANY-US201307002956

PATIENT
  Age: 13 Year
  Sex: Male

DRUGS (1)
  1. HUMATROPE [Suspect]
     Indication: BODY HEIGHT BELOW NORMAL
     Dosage: 3.2 MG, QD (THE HCP THINKS THE PATIENT WAS ON 3.2 MG A DAY OF HUMATROPE/VIAL)
     Route: 058

REACTIONS (2)
  - Left ventricular hypertrophy [Unknown]
  - Overdose [Unknown]
